FAERS Safety Report 17959503 (Version 1)
Quarter: 2020Q2

REPORT INFORMATION
  Report Type: Spontaneous
  Country: US (occurrence: US)
  Receive Date: 20200630
  Receipt Date: 20200630
  Transmission Date: 20200714
  Serious: No
  Sender: FDA-Public Use
  Company Number: US-009507513-2006USA007002

PATIENT
  Age: 32 Year
  Sex: Female
  Weight: 77.55 kg

DRUGS (2)
  1. NEXPLANON [Suspect]
     Active Substance: ETONOGESTREL
     Dosage: 1 ROD
     Route: 059
     Dates: end: 20200616
  2. NEXPLANON [Suspect]
     Active Substance: ETONOGESTREL
     Dosage: 1 ROD EVERY 3 YEARS, IN LEFT ARM
     Route: 059
     Dates: start: 20200616

REACTIONS (2)
  - Complication of device removal [Recovered/Resolved]
  - Device expulsion [Unknown]

NARRATIVE: CASE EVENT DATE: 20200616
